FAERS Safety Report 14100842 (Version 1)
Quarter: 2017Q4

REPORT INFORMATION
  Report Type: Spontaneous
  Country: US (occurrence: None)
  Receive Date: 20171017
  Receipt Date: 20171017
  Transmission Date: 20180321
  Serious: Yes (Hospitalization)
  Sender: FDA-Public Use
  Company Number: None

PATIENT
  Age: 62 Year
  Sex: Male
  Weight: 117.2 kg

DRUGS (1)
  1. SULFAMETHOXAZOLE/TRIMETHOPRIM DS [Suspect]
     Active Substance: SULFAMETHOXAZOLE\TRIMETHOPRIM
     Indication: CELLULITIS
     Dosage: DOSE AMOUNT - (800MG/160MG) - 1 TABLET
     Route: 048
     Dates: start: 20170926, end: 20170930

REACTIONS (6)
  - Nausea [None]
  - Vomiting [None]
  - Blood creatinine increased [None]
  - Pancreatitis [None]
  - Acute kidney injury [None]
  - Abdominal pain upper [None]

NARRATIVE: CASE EVENT DATE: 2017
